FAERS Safety Report 19985722 (Version 1)
Quarter: 2021Q4

REPORT INFORMATION
  Report Type: Report from Study
  Country: US (occurrence: US)
  Receive Date: 20211022
  Receipt Date: 20211022
  Transmission Date: 20220303
  Serious: Yes (Hospitalization, Other)
  Sender: FDA-Public Use
  Company Number: US-GILEAD-2021-0553551

PATIENT
  Sex: Female

DRUGS (1)
  1. AMBRISENTAN [Suspect]
     Active Substance: AMBRISENTAN
     Indication: Product used for unknown indication
     Dosage: 5 MG, QD
     Route: 048
     Dates: start: 20210923

REACTIONS (5)
  - Cardiac failure congestive [Unknown]
  - Suffocation feeling [Unknown]
  - Dizziness exertional [Unknown]
  - Dizziness [Unknown]
  - Dyspnoea [Unknown]
